FAERS Safety Report 5130990-3 (Version None)
Quarter: 2006Q4

REPORT INFORMATION
  Report Type: 
  Country: None (occurrence: None)
  Receive Date: 20060829
  Receipt Date: 20060703
  Transmission Date: 20070319
  Serious: Yes (Hospitalization)
  Sender: FDA-Public Use
  Company Number: PHEH2006US08572

PATIENT
  Age: 23 Year
  Sex: Female

DRUGS (1)
  1. EXJADE [Suspect]
     Indication: ANAEMIA HAEMOLYTIC AUTOIMMUNE
     Dosage: 625 MG, QD, ORAL
     Route: 048
     Dates: start: 20060324

REACTIONS (1)
  - ABDOMINAL PAIN [None]
